FAERS Safety Report 7133647-2 (Version None)
Quarter: 2010Q4

REPORT INFORMATION
  Report Type: 
  Country: None (occurrence: None)
  Receive Date: 20101202
  Receipt Date: 20101124
  Transmission Date: 20110411
  Serious: Yes (Hospitalization)
  Sender: FDA-Public Use
  Company Number: JP-ABBOTT-10P-087-0684904-00

PATIENT
  Sex: Male
  Weight: 46.1 kg

DRUGS (5)
  1. LEUPLIN FOR INJECTION 3.75 MG [Suspect]
     Indication: PROSTATE CANCER
     Route: 058
     Dates: start: 20060816
  2. TAK-700 [Suspect]
     Indication: PROSTATE CANCER
     Route: 048
     Dates: start: 20100928, end: 20101103
  3. SILODOSIN [Suspect]
     Indication: BENIGN PROSTATIC HYPERPLASIA
     Route: 048
     Dates: start: 20100714, end: 20101103
  4. EPLERENONE [Suspect]
     Indication: HYPOKALAEMIA
     Route: 048
     Dates: start: 20101026, end: 20101104
  5. BUP-4 [Suspect]
     Indication: BENIGN PROSTATIC HYPERPLASIA
     Route: 048
     Dates: start: 20100908, end: 20101104

REACTIONS (2)
  - ORTHOSTATIC HYPOTENSION [None]
  - PNEUMONITIS [None]
